FAERS Safety Report 16345164 (Version 1)
Quarter: 2019Q2

REPORT INFORMATION
  Report Type: Spontaneous
  Country: VE (occurrence: VE)
  Receive Date: 20190523
  Receipt Date: 20190523
  Transmission Date: 20190711
  Serious: Yes (Other)
  Sender: FDA-Public Use
  Company Number: VE-TEVA-2019-VE-1052929

PATIENT
  Age: 60 Year

DRUGS (1)
  1. CIPROFLOXACIN. [Suspect]
     Active Substance: CIPROFLOXACIN
     Indication: URINARY TRACT INFECTION
     Dosage: 1500 MILLIGRAM DAILY; FOR 7 DAYS.
     Route: 065

REACTIONS (1)
  - Tendon disorder [Unknown]
